FAERS Safety Report 10078849 (Version 1)
Quarter: 2014Q2

REPORT INFORMATION
  Report Type: Report from Study
  Country: CA (occurrence: CA)
  Receive Date: 20140415
  Receipt Date: 20140415
  Transmission Date: 20141212
  Serious: Yes (Other)
  Sender: FDA-Public Use
  Company Number: CA-JNJFOC-20140408119

PATIENT
  Sex: Male
  Weight: 96.8 kg

DRUGS (9)
  1. REMICADE [Suspect]
     Indication: CROHN^S DISEASE
     Dosage: 21ST INFUSION
     Route: 042
  2. REMICADE [Suspect]
     Indication: CROHN^S DISEASE
     Route: 042
     Dates: start: 20110506
  3. IMURAN [Concomitant]
     Route: 065
  4. NEXIUM [Concomitant]
     Route: 065
  5. COVERSYL [Concomitant]
     Route: 065
  6. LIPITOR [Concomitant]
     Route: 065
  7. CALCIUM [Concomitant]
     Route: 065
  8. CODEINE [Concomitant]
     Route: 065
  9. VIT D [Concomitant]
     Route: 065

REACTIONS (1)
  - Osteoarthritis [Not Recovered/Not Resolved]
